FAERS Safety Report 5256000-5 (Version None)
Quarter: 2007Q1

REPORT INFORMATION
  Report Type: 
  Country: None (occurrence: None)
  Receive Date: 20070306
  Receipt Date: 20070228
  Transmission Date: 20070707
  Serious: Yes (Life-Threatening, Hospitalization)
  Sender: FDA-Public Use
  Company Number: BEWYE809028FEB07

PATIENT
  Sex: Female

DRUGS (1)
  1. EFFEXOR [Suspect]

REACTIONS (3)
  - ANTIDEPRESSANT DRUG LEVEL INCREASED [None]
  - COMA [None]
  - LOSS OF CONSCIOUSNESS [None]
